FAERS Safety Report 10015017 (Version 1)
Quarter: 2014Q1

REPORT INFORMATION
  Report Type: Spontaneous
  Country: US (occurrence: US)
  Receive Date: 20140317
  Receipt Date: 20140317
  Transmission Date: 20141002
  Serious: Yes (Death, Other)
  Sender: FDA-Public Use
  Company Number: US-BAYER-2014-034072

PATIENT
  Age: 85 Year
  Sex: Male

DRUGS (2)
  1. MOXIFLOXACIN ORAL [Suspect]
  2. AZTREONAM [Suspect]

REACTIONS (2)
  - General physical health deterioration [Fatal]
  - Drug ineffective [None]
